FAERS Safety Report 20821133 (Version 2)
Quarter: 2022Q3

REPORT INFORMATION
  Report Type: Spontaneous
  Country: US (occurrence: US)
  Receive Date: 20220512
  Receipt Date: 20220811
  Transmission Date: 20221027
  Serious: No
  Sender: FDA-Public Use
  Company Number: US-PFIZER INC-202200248281

PATIENT
  Age: 57 Year
  Sex: Female

DRUGS (1)
  1. XELJANZ XR [Suspect]
     Active Substance: TOFACITINIB CITRATE
     Indication: Rheumatoid arthritis
     Dosage: 11 MG, 1X/DAY
     Route: 048
     Dates: start: 20160101

REACTIONS (6)
  - Sinusitis [Not Recovered/Not Resolved]
  - Facial pain [Unknown]
  - Headache [Unknown]
  - Illness [Unknown]
  - Intentional dose omission [Unknown]
  - Product dose omission in error [Unknown]
